FAERS Safety Report 8529014-7 (Version None)
Quarter: 2012Q3

REPORT INFORMATION
  Report Type: 
  Country: None (occurrence: None)
  Receive Date: 20120716
  Receipt Date: 20120716
  Transmission Date: 20120928
  Serious: Yes (Hospitalization)
  Sender: FDA-Public Use
  Company Number: None

PATIENT
  Sex: Female
  Weight: 136 kg

DRUGS (1)
  1. PACLITAXEL [Suspect]
     Dosage: 590.4 MG
     Dates: end: 20120606

REACTIONS (5)
  - CHOLECYSTITIS INFECTIVE [None]
  - BACTERIAL TEST POSITIVE [None]
  - PULMONARY OEDEMA [None]
  - INTERSTITIAL LUNG DISEASE [None]
  - CHOLELITHIASIS [None]
